FAERS Safety Report 9227770 (Version 2)
Quarter: 2013Q2

REPORT INFORMATION
  Report Type: Spontaneous
  Country: US (occurrence: US)
  Receive Date: 20130412
  Receipt Date: 20130412
  Transmission Date: 20140414
  Serious: No
  Sender: FDA-Public Use
  Company Number: US-MYLANLABS-2013S1000123

PATIENT
  Age: 73 Year
  Sex: Female
  Weight: 68.04 kg

DRUGS (1)
  1. DILTIAZEM HCL EXTENDED RELEASE CAPSULES, USP [Suspect]
     Indication: HYPERTENSION
     Route: 048
     Dates: start: 201112

REACTIONS (2)
  - Drug effect decreased [Not Recovered/Not Resolved]
  - Migraine [Not Recovered/Not Resolved]
